FAERS Safety Report 6637738-1 (Version None)
Quarter: 2010Q1

REPORT INFORMATION
  Report Type: 
  Country: None (occurrence: None)
  Receive Date: 20100315
  Receipt Date: 20100315
  Transmission Date: 20100710
  Serious: Yes (Hospitalization)
  Sender: FDA-Public Use
  Company Number: None

PATIENT
  Sex: Female
  Weight: 70.53 kg

DRUGS (2)
  1. XELODA [Suspect]
     Dosage: 57750MG
  2. OXALIPLATIN [Suspect]

REACTIONS (4)
  - ENTEROBACTER INFECTION [None]
  - ENTEROCOCCAL INFECTION [None]
  - PROTEUS INFECTION [None]
  - WOUND INFECTION [None]
